FAERS Safety Report 4780149-4 (Version None)
Quarter: 2005Q3

REPORT INFORMATION
  Report Type: 
  Country: None (occurrence: None)
  Receive Date: 20050914
  Receipt Date: 20050430
  Transmission Date: 20060218
  Serious: Yes (Hospitalization, Other)
  Sender: FDA-Public Use
  Company Number: 163-20785-05040380

PATIENT
  Age: 66 Year
  Sex: Male

DRUGS (28)
  1. THALOMID [Suspect]
     Indication: MULTIPLE MYELOMA
     Dosage: 200, QD, ORAL; 200 MG; 100 MG; 100 MG
     Route: 048
     Dates: start: 20040923, end: 20040926
  2. THALOMID [Suspect]
     Indication: MULTIPLE MYELOMA
     Dosage: 200, QD, ORAL; 200 MG; 100 MG; 100 MG
     Route: 048
     Dates: start: 20041215, end: 20050201
  3. THALOMID [Suspect]
     Indication: MULTIPLE MYELOMA
     Dosage: 200, QD, ORAL; 200 MG; 100 MG; 100 MG
     Route: 048
     Dates: start: 20040814
  4. THALOMID [Suspect]
     Indication: MULTIPLE MYELOMA
     Dosage: 200, QD, ORAL; 200 MG; 100 MG; 100 MG
     Route: 048
     Dates: start: 20050307
  5. DEXAMETHASONE [Suspect]
     Indication: MULTIPLE MYELOMA
     Dosage: 40 MG, QD, ORAL
     Route: 048
     Dates: start: 20040923, end: 20040926
  6. DEXAMETHASONE [Suspect]
     Indication: MULTIPLE MYELOMA
     Dosage: 40 MG, QD, ORAL
     Route: 048
     Dates: start: 20040814
  7. CISPLATIN [Suspect]
     Indication: MULTIPLE MYELOMA
     Dosage: 18 MG, QD, INTRAVENOUS
     Route: 042
     Dates: start: 20040923, end: 20040926
  8. CISPLATIN [Suspect]
     Indication: MULTIPLE MYELOMA
     Dosage: 18 MG, QD, INTRAVENOUS
     Route: 042
     Dates: start: 20040814
  9. ADRIAMYCIN PFS [Suspect]
     Indication: MULTIPLE MYELOMA
     Dosage: 18 MG, QD, INTRAVENOUS
     Route: 042
     Dates: start: 20040923, end: 20040926
  10. ADRIAMYCIN PFS [Suspect]
     Indication: MULTIPLE MYELOMA
     Dosage: 18 MG, QD, INTRAVENOUS
     Route: 042
     Dates: start: 20040814
  11. CYCLOPHOSPHAMIDE [Suspect]
     Indication: MULTIPLE MYELOMA
     Dosage: 732 MG, QD, INTRAVENOUS
     Route: 042
     Dates: start: 20040923, end: 20040926
  12. CYCLOPHOSPHAMIDE [Suspect]
     Indication: MULTIPLE MYELOMA
     Dosage: 732 MG, QD, INTRAVENOUS
     Route: 042
     Dates: start: 20040814
  13. ETOPOSIDE [Suspect]
     Indication: MULTIPLE MYELOMA
     Dosage: 73 MG, QD, INTRAVENOUS
     Route: 042
     Dates: start: 20040923, end: 20040926
  14. ETOPOSIDE [Suspect]
     Indication: MULTIPLE MYELOMA
     Dosage: 73 MG, QD, INTRAVENOUS
     Route: 042
     Dates: start: 20040814
  15. BORTEZOMIB (BORTEZOMIB) [Suspect]
     Indication: MULTIPLE MYELOMA
     Dosage: 1.8 MG, QD, INTRAVENOUS
     Route: 042
     Dates: start: 20040920, end: 20040920
  16. BORTEZOMIB (BORTEZOMIB) [Suspect]
     Indication: MULTIPLE MYELOMA
     Dosage: 1.8 MG, QD, INTRAVENOUS
     Route: 042
     Dates: start: 20040923, end: 20040923
  17. BORTEZOMIB (BORTEZOMIB) [Suspect]
     Indication: MULTIPLE MYELOMA
     Dosage: 1.8 MG, QD, INTRAVENOUS
     Route: 042
     Dates: start: 20040927, end: 20040927
  18. BORTEZOMIB (BORTEZOMIB) [Suspect]
     Indication: MULTIPLE MYELOMA
     Dosage: 1.8 MG, QD, INTRAVENOUS
     Route: 042
     Dates: start: 20040930, end: 20040930
  19. BORTEZOMIB (BORTEZOMIB) [Suspect]
     Indication: MULTIPLE MYELOMA
     Dosage: 1.8 MG, QD, INTRAVENOUS
     Route: 042
     Dates: start: 20040814
  20. MELPHALAN (MELPHALAN) [Suspect]
     Indication: MULTIPLE MYELOMA
     Dosage: 200 MG/M2
     Dates: start: 20041114, end: 20041114
  21. MELPHALAN (MELPHALAN) [Suspect]
     Indication: MULTIPLE MYELOMA
     Dosage: 200 MG/M2
     Dates: start: 20050213, end: 20050213
  22. METOPROLOL [Concomitant]
  23. OSCAL (CALCIUM CARBONATE) [Concomitant]
  24. OXYCODONE [Concomitant]
  25. DURAGESIC-100 [Concomitant]
  26. ZANTAC [Concomitant]
  27. LOVENOX [Concomitant]
  28. ACYCLOVIR [Concomitant]

REACTIONS (13)
  - ATRIAL FIBRILLATION [None]
  - BACK PAIN [None]
  - CARDIAC FAILURE [None]
  - CARDIAC FAILURE CONGESTIVE [None]
  - COLITIS [None]
  - DIARRHOEA [None]
  - INAPPROPRIATE ANTIDIURETIC HORMONE SECRETION [None]
  - MUCOSAL INFLAMMATION [None]
  - PAIN [None]
  - PNEUMONIA [None]
  - PYREXIA [None]
  - SYNCOPE [None]
  - VENTRICULAR EXTRASYSTOLES [None]
